FAERS Safety Report 14496434 (Version 1)
Quarter: 2018Q1

REPORT INFORMATION
  Report Type: Spontaneous
  Country: FR (occurrence: FR)
  Receive Date: 20180207
  Receipt Date: 20180207
  Transmission Date: 20180509
  Serious: Yes (Other)
  Sender: FDA-Public Use
  Company Number: FR-MERCK KGAA-2041543

PATIENT
  Age: 51 Year
  Sex: Female
  Weight: 62 kg

DRUGS (1)
  1. NOVOTHYROX [Suspect]
     Active Substance: LEVOTHYROXINE SODIUM
     Indication: HYPOTHYROIDISM
     Route: 048
     Dates: start: 20170424, end: 20171108

REACTIONS (13)
  - Fatigue [Recovered/Resolved]
  - Throat irritation [Recovered/Resolved]
  - Somnolence [Recovered/Resolved]
  - Dyspnoea [Recovered/Resolved]
  - Diabetes mellitus inadequate control [Recovered/Resolved]
  - Memory impairment [Recovered/Resolved]
  - Myoclonus [Recovered/Resolved]
  - Hyperglycaemia [Recovered/Resolved]
  - Petit mal epilepsy [Recovered/Resolved]
  - Anxiety [Recovered/Resolved]
  - Blood thyroid stimulating hormone normal [Recovered/Resolved]
  - Nasopharyngitis [Recovered/Resolved]
  - Fear [Not Recovered/Not Resolved]

NARRATIVE: CASE EVENT DATE: 201706
